FAERS Safety Report 18967419 (Version 2)
Quarter: 2025Q1

REPORT INFORMATION
  Report Type: Spontaneous
  Country: IT (occurrence: IT)
  Receive Date: 20210304
  Receipt Date: 20250227
  Transmission Date: 20250408
  Serious: Yes (Life-Threatening, Other)
  Sender: AUROBINDO
  Company Number: IT-MINISAL02-88384

PATIENT
  Age: 57 Year
  Sex: Female

DRUGS (6)
  1. ZEVALIN [Suspect]
     Active Substance: IBRITUMOMAB TIUXETAN
     Indication: Non-Hodgkin^s lymphoma
     Route: 065
     Dates: start: 20061207
  2. ZEVALIN [Suspect]
     Active Substance: IBRITUMOMAB TIUXETAN
     Indication: Follicle centre lymphoma, follicular grade I, II, III stage III
  3. MELPHALAN [Concomitant]
     Active Substance: MELPHALAN
     Indication: Non-Hodgkin^s lymphoma
     Route: 065
  4. CARMUSTINE [Concomitant]
     Active Substance: CARMUSTINE
     Indication: Non-Hodgkin^s lymphoma
     Route: 065
  5. ETOPOSIDE [Concomitant]
     Active Substance: ETOPOSIDE
     Indication: Non-Hodgkin^s lymphoma
     Route: 065
  6. CYTARABINE [Concomitant]
     Active Substance: CYTARABINE
     Indication: Non-Hodgkin^s lymphoma
     Route: 065

REACTIONS (4)
  - Thrombocytopenia [Unknown]
  - Urinary tract infection enterococcal [Unknown]
  - Blood culture positive [Unknown]
  - Pneumonia [Unknown]
